FAERS Safety Report 16472469 (Version 1)
Quarter: 2019Q2

REPORT INFORMATION
  Report Type: Spontaneous
  Country: JP (occurrence: JP)
  Receive Date: 20190625
  Receipt Date: 20190625
  Transmission Date: 20190711
  Serious: Yes (Other)
  Sender: FDA-Public Use
  Company Number: JP-SAKK-2019SA166710AA

PATIENT
  Age: 23 Month

DRUGS (5)
  1. THYMOGLOBULINE [Suspect]
     Active Substance: LAPINE T-LYMPHOCYTE IMMUNE GLOBULIN
     Indication: MEDICAL PROCEDURE
     Dosage: 2.5 MG/KG
     Route: 041
  2. TACROLIMUS MONOHYDRATE [Concomitant]
     Active Substance: TACROLIMUS
     Indication: PROPHYLAXIS
     Route: 065
  3. FLUDARA [Suspect]
     Active Substance: FLUDARABINE PHOSPHATE
     Indication: MEDICAL PROCEDURE
     Dosage: 30 MG/M2
     Route: 042
  4. MELPHALAN. [Concomitant]
     Active Substance: MELPHALAN
     Indication: MEDICAL PROCEDURE
     Dosage: 70 MG/M2
     Route: 065
  5. METHOTREXATE. [Concomitant]
     Active Substance: METHOTREXATE
     Indication: PROPHYLAXIS
     Route: 065

REACTIONS (2)
  - Graft versus host disease in skin [Unknown]
  - Cytomegalovirus infection [Unknown]
